FAERS Safety Report 8129407-6 (Version None)
Quarter: 2012Q1

REPORT INFORMATION
  Report Type: 
  Country: None (occurrence: None)
  Receive Date: 20120210
  Receipt Date: 20120202
  Transmission Date: 20120608
  Serious: Yes (Hospitalization)
  Sender: FDA-Public Use
  Company Number: US-PURDUE-USA-2012-0081831

PATIENT
  Sex: Female

DRUGS (2)
  1. OXYCONTIN [Suspect]
     Indication: PAIN
     Dosage: 40 MG, DAILY
     Route: 048
  2. PERCOCET [Suspect]
     Indication: BREAKTHROUGH PAIN
     Dosage: UNK

REACTIONS (5)
  - MALAISE [None]
  - NAUSEA [None]
  - DRUG WITHDRAWAL SYNDROME [None]
  - PEPTIC ULCER [None]
  - VOMITING [None]
